FAERS Safety Report 18395031 (Version 1)
Quarter: 2020Q4

REPORT INFORMATION
  Report Type: Spontaneous
  Country: IT (occurrence: IT)
  Receive Date: 20201016
  Receipt Date: 20201016
  Transmission Date: 20210114
  Serious: Yes (Hospitalization)
  Sender: FDA-Public Use
  Company Number: IT-CELGENEUS-ITA-20201003484

PATIENT
  Age: 66 Year
  Sex: Female

DRUGS (1)
  1. ABRAXANE [Suspect]
     Active Substance: PACLITAXEL
     Indication: BREAST CANCER STAGE IV
     Dosage: 140 MILLIGRAM
     Route: 042
     Dates: start: 20200929, end: 20200929

REACTIONS (4)
  - Skin lesion [Recovering/Resolving]
  - Extravasation [Recovering/Resolving]
  - Application site joint swelling [Recovering/Resolving]
  - Infusion site pain [Recovering/Resolving]

NARRATIVE: CASE EVENT DATE: 20200929
